FAERS Safety Report 4459282-2 (Version None)
Quarter: 2004Q3

REPORT INFORMATION
  Report Type: 
  Country: None (occurrence: None)
  Receive Date: 20040914
  Receipt Date: 20040830
  Transmission Date: 20050211
  Serious: Yes (Other)
  Sender: FDA-Public Use
  Company Number: 601478

PATIENT
  Age: 1 Year
  Sex: Male
  Weight: 10 kg

DRUGS (1)
  1. ADVATE [Suspect]
     Indication: FACTOR VIII DEFICIENCY
     Dosage: 500 IU; QD; INTRAVENOUS
     Route: 042
     Dates: start: 20040803, end: 20040820

REACTIONS (2)
  - CATHETER RELATED INFECTION [None]
  - FACTOR VIII INHIBITION [None]
